FAERS Safety Report 5106143-1 (Version None)
Quarter: 2006Q3

REPORT INFORMATION
  Report Type: 
  Country: None (occurrence: None)
  Receive Date: 20060918
  Receipt Date: 20060907
  Transmission Date: 20061208
  Serious: Yes (Other)
  Sender: FDA-Public Use
  Company Number: CH-JNJFOC-20060901856

PATIENT
  Age: 46 Year
  Sex: Female

DRUGS (3)
  1. REMICADE [Suspect]
     Indication: RHEUMATOID ARTHRITIS
     Route: 042
  2. ARAVA [Concomitant]
     Route: 048
  3. SPIRICORT [Concomitant]
     Route: 048

REACTIONS (8)
  - ACUTE SINUSITIS [None]
  - ALANINE AMINOTRANSFERASE INCREASED [None]
  - ASPARTATE AMINOTRANSFERASE INCREASED [None]
  - HAEMOGLOBIN DECREASED [None]
  - MASTOIDITIS [None]
  - OTITIS MEDIA [None]
  - RED BLOOD CELL SEDIMENTATION RATE INCREASED [None]
  - SJOGREN'S SYNDROME [None]
